FAERS Safety Report 9220812 (Version 1)
Quarter: 2013Q2

REPORT INFORMATION
  Report Type: Spontaneous
  Country: GB (occurrence: GB)
  Receive Date: 20130409
  Receipt Date: 20130409
  Transmission Date: 20140414
  Serious: Yes (Other)
  Sender: FDA-Public Use
  Company Number: GB-TEVA-396320ISR

PATIENT
  Age: 37 Year
  Sex: Female
  Weight: 84.2 kg

DRUGS (1)
  1. CITALOPRAM [Suspect]
     Indication: DEPRESSION
     Route: 048
     Dates: start: 20130302

REACTIONS (1)
  - Cerebral vasoconstriction [Recovered/Resolved]
